FAERS Safety Report 4754281-5 (Version None)
Quarter: 2005Q3

REPORT INFORMATION
  Report Type: 
  Country: None (occurrence: None)
  Receive Date: 20050825
  Receipt Date: 20050816
  Transmission Date: 20060218
  Serious: Yes (Other)
  Sender: FDA-Public Use
  Company Number: 2005-08-1271

PATIENT

DRUGS (1)
  1. CELESTONE SOLUSPAN [Suspect]
     Dosage: EPIDURAL
     Route: 008

REACTIONS (1)
  - ANAPHYLACTIC REACTION [None]
